FAERS Safety Report 9649720 (Version 2)
Quarter: 2013Q4

REPORT INFORMATION
  Report Type: Report from Study
  Country: GR (occurrence: GR)
  Receive Date: 20131028
  Receipt Date: 20131205
  Transmission Date: 20140711
  Serious: Yes (Hospitalization, Other)
  Sender: FDA-Public Use
  Company Number: GR-ROCHE-1293144

PATIENT
  Sex: Female

DRUGS (6)
  1. ROACTEMRA [Suspect]
     Indication: RHEUMATOID ARTHRITIS
     Route: 042
     Dates: start: 2010
  2. LASIX [Concomitant]
     Indication: OLIGURIA
     Route: 048
     Dates: start: 2006
  3. TILDIEM [Concomitant]
     Route: 048
  4. CRESTOR [Concomitant]
     Indication: BLOOD CHOLESTEROL
     Route: 048
  5. GLUCOPHAGE [Concomitant]
     Route: 048
     Dates: start: 2001
  6. DIAMICRON [Concomitant]

REACTIONS (8)
  - Fall [Unknown]
  - Limb injury [Unknown]
  - Pain [Unknown]
  - Dementia [Unknown]
  - Asthma [Unknown]
  - Dizziness [Unknown]
  - Pain in extremity [Unknown]
  - Laceration [Unknown]
